FAERS Safety Report 21029141 (Version 2)
Quarter: 2022Q3

REPORT INFORMATION
  Report Type: Spontaneous
  Country: US (occurrence: US)
  Receive Date: 20220630
  Receipt Date: 20220715
  Transmission Date: 20221027
  Serious: Yes (Hospitalization)
  Sender: FDA-Public Use
  Company Number: US-TEVA-2022-US-2049808

PATIENT
  Age: 44 Year
  Sex: Female

DRUGS (1)
  1. SULFAMETHOXAZOLE\TRIMETHOPRIM [Suspect]
     Active Substance: SULFAMETHOXAZOLE\TRIMETHOPRIM
     Indication: Urinary tract infection
     Dosage: DOUBLE STRENGTH ONCE-A-DAY
     Route: 065

REACTIONS (2)
  - Drug-induced liver injury [Recovering/Resolving]
  - Splenomegaly [Recovering/Resolving]
